FAERS Safety Report 6640448-8 (Version None)
Quarter: 2010Q1

REPORT INFORMATION
  Report Type: 
  Country: None (occurrence: None)
  Receive Date: 20100318
  Receipt Date: 20100308
  Transmission Date: 20100710
  Serious: Yes (Death)
  Sender: FDA-Public Use
  Company Number: US-PFIZER INC-2010016322

PATIENT
  Sex: Male

DRUGS (4)
  1. XANAX [Suspect]
  2. METHADONE HYDROCHLORIDE [Suspect]
  3. LORTAB [Suspect]
  4. OXYCONTIN [Suspect]

REACTIONS (1)
  - DEATH [None]
